FAERS Safety Report 8222975-5 (Version None)
Quarter: 2012Q1

REPORT INFORMATION
  Report Type: 
  Country: None (occurrence: None)
  Receive Date: 20120320
  Receipt Date: 20120313
  Transmission Date: 20120608
  Serious: Yes (Hospitalization)
  Sender: FDA-Public Use
  Company Number: US-ASTRAZENECA-2011SE59894

PATIENT
  Age: 87 Year
  Sex: Female

DRUGS (1)
  1. SYMBICORT [Suspect]
     Indication: ASTHMA
     Dosage: UNKNOWN FREQUENCY
     Route: 055

REACTIONS (6)
  - COGNITIVE DISORDER [None]
  - DEMENTIA [None]
  - STRESS [None]
  - BODY HEIGHT DECREASED [None]
  - OSTEOPOROSIS [None]
  - HEARING IMPAIRED [None]
